FAERS Safety Report 8375300-3 (Version None)
Quarter: 2012Q2

REPORT INFORMATION
  Report Type: 
  Country: None (occurrence: None)
  Receive Date: 20120522
  Receipt Date: 20120514
  Transmission Date: 20120825
  Serious: No
  Sender: FDA-Public Use
  Company Number: US-BIOGENIDEC-2012BI007337

PATIENT
  Age: 43 Year
  Sex: Female

DRUGS (2)
  1. FLU SHOT [Concomitant]
     Indication: INFLUENZA
  2. TYSABRI [Suspect]
     Indication: MULTIPLE SCLEROSIS
     Route: 042
     Dates: start: 20120222

REACTIONS (17)
  - ABASIA [None]
  - DECREASED IMMUNE RESPONSIVENESS [None]
  - FATIGUE [None]
  - INFLUENZA LIKE ILLNESS [None]
  - PAIN [None]
  - SNEEZING [None]
  - OEDEMA PERIPHERAL [None]
  - NASOPHARYNGITIS [None]
  - RASH PAPULAR [None]
  - INFLUENZA [None]
  - COUGH [None]
  - DYSPNOEA [None]
  - HEADACHE [None]
  - ARTHRALGIA [None]
  - GAIT DISTURBANCE [None]
  - JOINT SWELLING [None]
  - ASTHENIA [None]
